FAERS Safety Report 17618616 (Version 1)
Quarter: 2020Q2

REPORT INFORMATION
  Report Type: Spontaneous
  Country: CN (occurrence: CN)
  Receive Date: 20200402
  Receipt Date: 20200402
  Transmission Date: 20200713
  Serious: Yes (Other)
  Sender: FDA-Public Use
  Company Number: CN-BAXTER-2020BAX006852

PATIENT
  Age: 32 Year
  Sex: Female
  Weight: 71 kg

DRUGS (4)
  1. 10% GLUCOSE  INJECTION [Suspect]
     Active Substance: DEXTROSE
     Indication: FLUID REPLACEMENT
     Dosage: DOSE: 500 UNITS
     Route: 041
     Dates: start: 20200325, end: 20200325
  2. ADENOSINE TRIPHOSPHATE COENZYME INSULIN [Suspect]
     Active Substance: ADENOSINE TRIPHOSPHATE DISODIUM\COENZYME A\INSULIN
     Indication: FLUID REPLACEMENT
     Dosage: DOSE: 2 BOTTLE
     Route: 041
     Dates: start: 20200325, end: 20200325
  3. VITAMIN C [Suspect]
     Active Substance: ASCORBIC ACID
     Indication: FLUID REPLACEMENT
     Route: 041
     Dates: start: 20200325, end: 20200325
  4. OXYTOCIN. [Suspect]
     Active Substance: OXYTOCIN
     Indication: DRUG THERAPY
     Route: 041
     Dates: start: 20200325, end: 20200325

REACTIONS (2)
  - Dyspnoea [Recovering/Resolving]
  - Erythema [Recovering/Resolving]

NARRATIVE: CASE EVENT DATE: 20200325
